FAERS Safety Report 20065822 (Version 1)
Quarter: 2021Q4

REPORT INFORMATION
  Report Type: Spontaneous
  Country: BR (occurrence: BR)
  Receive Date: 20211114
  Receipt Date: 20211114
  Transmission Date: 20220303
  Serious: Yes (Other)
  Sender: FDA-Public Use
  Company Number: None

PATIENT
  Sex: Female

DRUGS (8)
  1. LOSARTAN POTASSIUM [Suspect]
     Active Substance: LOSARTAN POTASSIUM
     Dosage: UNK
     Route: 065
  2. FORTEO [Suspect]
     Active Substance: TERIPARATIDE
     Indication: Osteoporosis
     Dosage: 20 MILLIGRAM, QD
     Route: 058
     Dates: start: 20190709
  3. FORTEO [Suspect]
     Active Substance: TERIPARATIDE
     Dosage: 20 MILLIGRAM, QD
     Route: 058
  4. TAMOXIFEN [Suspect]
     Active Substance: TAMOXIFEN
     Dosage: UNK
     Route: 065
  5. DILTIAZEM HYDROCHLORIDE [Concomitant]
     Active Substance: DILTIAZEM HYDROCHLORIDE
     Indication: Angina pectoris
     Dosage: UNK
     Route: 065
  6. COVID-19 VACCINE [Concomitant]
     Indication: COVID-19 prophylaxis
     Dosage: UNK
     Route: 065
  7. PANTOPRAZOLE [Concomitant]
     Active Substance: PANTOPRAZOLE
     Indication: Nausea
     Dosage: UNK
     Route: 065
  8. PROMETAZINA [PROMETHAZINE] [Concomitant]
     Indication: Hypersensitivity
     Dosage: UNK
     Route: 065

REACTIONS (12)
  - Hypothermia [Recovering/Resolving]
  - Shock [Unknown]
  - Diarrhoea [Recovering/Resolving]
  - Lactose intolerance [Unknown]
  - Skin lesion [Unknown]
  - Blood pressure increased [Recovered/Resolved]
  - Fatigue [Unknown]
  - Suspected COVID-19 [Unknown]
  - Decreased appetite [Unknown]
  - Milk allergy [Unknown]
  - Nausea [Unknown]
  - Drug interaction [Unknown]

NARRATIVE: CASE EVENT DATE: 20200101
